FAERS Safety Report 5647103-1 (Version None)
Quarter: 2008Q1

REPORT INFORMATION
  Report Type: 
  Country: None (occurrence: None)
  Receive Date: 20080303
  Receipt Date: 20080222
  Transmission Date: 20080703
  Serious: Yes (Hospitalization, Other)
  Sender: FDA-Public Use
  Company Number: HQWYE484310NOV05

PATIENT
  Sex: Female

DRUGS (5)
  1. PREMPRO [Suspect]
  2. ESTRACE [Suspect]
  3. PROVERA [Suspect]
  4. PREMARIN [Suspect]
  5. CYCRIN [Suspect]

REACTIONS (1)
  - BREAST CANCER METASTATIC [None]
